FAERS Safety Report 11146421 (Version 2)
Quarter: 2015Q2

REPORT INFORMATION
  Report Type: Spontaneous
  Country: US (occurrence: US)
  Receive Date: 20150528
  Receipt Date: 20150605
  Transmission Date: 20150821
  Serious: Yes (Hospitalization)
  Sender: FDA-Public Use
  Company Number: US-TEVA-566278USA

PATIENT
  Age: 26 Year
  Sex: Female

DRUGS (1)
  1. DESMOPRESSIN [Suspect]
     Active Substance: DESMOPRESSIN
     Route: 065

REACTIONS (2)
  - Brain injury [Unknown]
  - Hyponatraemia [Recovering/Resolving]
